FAERS Safety Report 5509514-4 (Version None)
Quarter: 2007Q4

REPORT INFORMATION
  Report Type: 
  Country: None (occurrence: None)
  Receive Date: 20071029
  Receipt Date: 20070821
  Transmission Date: 20080405
  Serious: No
  Sender: FDA-Public Use
  Company Number: 013104

PATIENT
  Age: 55 Year
  Sex: Female

DRUGS (3)
  1. PRIALT [Suspect]
     Indication: PAIN
     Dosage: 0.12 UG,ONCE/HOUR, INTRATHECAL; 0.08 UG,ONCE/HOUR, INTRATHECAL; 0.16 UG,ONCE/HOUR, INTRATHECAL
     Route: 037
  2. PRIALT [Suspect]
     Indication: SURGICAL FAILURE
     Dosage: 0.12 UG,ONCE/HOUR, INTRATHECAL; 0.08 UG,ONCE/HOUR, INTRATHECAL; 0.16 UG,ONCE/HOUR, INTRATHECAL
     Route: 037
  3. METHADONE HCL [Concomitant]

REACTIONS (7)
  - AMNESIA [None]
  - FEELING HOT [None]
  - HALLUCINATION [None]
  - HYPERHIDROSIS [None]
  - NERVOUSNESS [None]
  - SPEECH DISORDER [None]
  - VITREOUS FLOATERS [None]
